FAERS Safety Report 22069411 (Version 1)
Quarter: 2023Q1

REPORT INFORMATION
  Report Type: Spontaneous
  Country: US (occurrence: US)
  Receive Date: 20230307
  Receipt Date: 20230307
  Transmission Date: 20230417
  Serious: No
  Sender: FDA-Public Use
  Company Number: US-AMNEAL PHARMACEUTICALS-2022-AMRX-04120

PATIENT
  Age: 64 Year
  Sex: Male

DRUGS (1)
  1. RYTARY [Suspect]
     Active Substance: CARBIDOPA\LEVODOPA
     Indication: Parkinson^s disease
     Dosage: 23.75/95 MG, 3 /DAY
     Route: 048
     Dates: start: 20221212, end: 20221228

REACTIONS (6)
  - Gastrointestinal disorder [Unknown]
  - Gallbladder disorder [Unknown]
  - Sleep disorder due to general medical condition, insomnia type [Unknown]
  - Pain [Unknown]
  - Nausea [Unknown]
  - Tremor [Not Recovered/Not Resolved]

NARRATIVE: CASE EVENT DATE: 20221201
